FAERS Safety Report 7863758-5 (Version None)
Quarter: 2011Q4

REPORT INFORMATION
  Report Type: 
  Country: None (occurrence: None)
  Receive Date: 20111027
  Receipt Date: 20101209
  Transmission Date: 20120403
  Serious: No
  Sender: FDA-Public Use
  Company Number: US-AMGEN-USASP2010008430

PATIENT
  Sex: Female

DRUGS (2)
  1. ENBREL [Suspect]
     Indication: PSORIASIS
     Dates: start: 20060101, end: 20070101
  2. ENBREL [Suspect]
     Indication: PSORIATIC ARTHROPATHY

REACTIONS (6)
  - CONTUSION [None]
  - IMPAIRED HEALING [None]
  - SUBCUTANEOUS ABSCESS [None]
  - ARTHRALGIA [None]
  - ARTHROPATHY [None]
  - RASH GENERALISED [None]
